FAERS Safety Report 9721927 (Version 2)
Quarter: 2014Q1

REPORT INFORMATION
  Report Type: Spontaneous
  Country: US (occurrence: US)
  Receive Date: 20131202
  Receipt Date: 20140210
  Transmission Date: 20141002
  Serious: Yes (Death, Other)
  Sender: FDA-Public Use
  Company Number: US-MERCK-1311USA011648

PATIENT
  Age: 78 Year
  Sex: Female

DRUGS (1)
  1. TEMODAR [Suspect]
     Indication: HEPATIC CANCER
     Dosage: 100 MG, QD
     Route: 048
     Dates: start: 201309, end: 20131121

REACTIONS (2)
  - Death [Fatal]
  - Metastases to central nervous system [Unknown]
